FAERS Safety Report 6735392-1 (Version None)
Quarter: 2010Q2

REPORT INFORMATION
  Report Type: 
  Country: None (occurrence: None)
  Receive Date: 20100521
  Receipt Date: 20100513
  Transmission Date: 20101027
  Serious: Yes (Hospitalization, Other)
  Sender: FDA-Public Use
  Company Number: GB-ASTRAZENECA-2010SE21831

PATIENT
  Age: 19 Year
  Sex: Male

DRUGS (10)
  1. QUETIAPINE [Suspect]
     Indication: PSYCHOTIC DISORDER
     Route: 048
     Dates: start: 20091201
  2. QUETIAPINE [Suspect]
     Route: 048
     Dates: end: 20100206
  3. QUETIAPINE [Suspect]
     Route: 048
  4. ALFACALCIDOL [Concomitant]
  5. MAGNESIUM GLYCEROPHOSPHATE [Concomitant]
  6. RAMIPRIL [Concomitant]
  7. SANDO-K [Concomitant]
  8. SLOW-K [Concomitant]
  9. SLOW SODIUM [Concomitant]
  10. SPIRONOLACTONE [Concomitant]

REACTIONS (5)
  - APHASIA [None]
  - DYSPHAGIA [None]
  - EXTRAPYRAMIDAL DISORDER [None]
  - SALIVARY HYPERSECRETION [None]
  - SOCIAL AVOIDANT BEHAVIOUR [None]
